FAERS Safety Report 20969019 (Version 1)
Quarter: 2022Q2

REPORT INFORMATION
  Report Type: Spontaneous
  Country: US (occurrence: US)
  Receive Date: 20220616
  Receipt Date: 20220616
  Transmission Date: 20220721
  Serious: No
  Sender: FDA-Public Use
  Company Number: US-BRISTOL-MYERS SQUIBB COMPANY-2022-052207

PATIENT
  Age: 60 Year
  Sex: Female

DRUGS (1)
  1. REVLIMID [Suspect]
     Active Substance: LENALIDOMIDE
     Indication: Non-Hodgkin^s lymphoma
     Dosage: 5 MG, 1 CAPSULE, EVERY OTHER DAY FOR 21 DAYS ON AND 7 DAYS OFF
     Route: 048
     Dates: start: 202106

REACTIONS (1)
  - Full blood count decreased [Unknown]
